FAERS Safety Report 4816675-9 (Version None)
Quarter: 2005Q4

REPORT INFORMATION
  Report Type: 
  Country: None (occurrence: None)
  Receive Date: 20051031
  Receipt Date: 20051031
  Transmission Date: 20060501
  Serious: Yes (Hospitalization)
  Sender: FDA-Public Use
  Company Number: None

PATIENT
  Sex: Female
  Weight: 46.4 kg

DRUGS (11)
  1. RITUXAN [Suspect]
     Indication: LYMPHOMA
     Dosage: 8 CYCLES
  2. ALPRAZOLAM [Concomitant]
  3. BUSPIRONE HCL [Concomitant]
  4. NEUPOGEN [Concomitant]
  5. DIGOXIN [Concomitant]
  6. LASIX [Concomitant]
  7. PROTONIX [Concomitant]
  8. PAXIL [Concomitant]
  9. POTASSIUM CHLORIDE [Concomitant]
  10. BACTRIM [Concomitant]
  11. D5%/0.45%NS [Concomitant]

REACTIONS (10)
  - ANAEMIA [None]
  - BONE PAIN [None]
  - CHILLS [None]
  - DIFFICULTY IN WALKING [None]
  - JAUNDICE [None]
  - LIVER DISORDER [None]
  - NON-HODGKIN'S LYMPHOMA [None]
  - PAIN IN EXTREMITY [None]
  - PYREXIA [None]
  - SERUM SICKNESS [None]
